FAERS Safety Report 8862924 (Version 3)
Quarter: 2014Q1

REPORT INFORMATION
  Report Type: Spontaneous
  Country: US (occurrence: US)
  Receive Date: 20121026
  Receipt Date: 20140121
  Transmission Date: 20141002
  Serious: Yes (Hospitalization, Disabling, Other)
  Sender: FDA-Public Use
  Company Number: US-009507513-1210USA007621

PATIENT
  Sex: Female

DRUGS (5)
  1. FOSAMAX [Suspect]
     Indication: OSTEOPOROSIS
     Dosage: 10 MG, UNK
     Route: 048
     Dates: end: 200101
  2. FOSAMAX [Suspect]
     Indication: OSTEOPENIA
     Dosage: 70 MG, QW
     Route: 048
     Dates: start: 200102, end: 200408
  3. VITAMINS (UNSPECIFIED) [Concomitant]
     Dosage: UNK
     Dates: start: 2000
  4. CALCIUM (UNSPECIFIED) [Concomitant]
     Dosage: UNK
     Dates: start: 2000
  5. VITAMIN D (UNSPECIFIED) [Concomitant]
     Dosage: UNK
     Dates: start: 2000

REACTIONS (31)
  - Clavicle fracture [Unknown]
  - Femur fracture [Unknown]
  - Femur fracture [Recovered/Resolved]
  - Low turnover osteopathy [Unknown]
  - Osteoporosis [Not Recovered/Not Resolved]
  - Femur fracture [Not Recovered/Not Resolved]
  - Open reduction of fracture [Unknown]
  - Open reduction of fracture [Unknown]
  - Haematocrit decreased [Recovered/Resolved]
  - Haemoglobin decreased [Unknown]
  - Hip arthroplasty [Unknown]
  - Femoral neck fracture [Unknown]
  - Transfusion [Recovered/Resolved]
  - Tibia fracture [Unknown]
  - Internal fixation of fracture [Unknown]
  - Bronchitis [Unknown]
  - Fracture nonunion [Unknown]
  - Fibula fracture [Unknown]
  - Vitamin D deficiency [Unknown]
  - Foot fracture [Unknown]
  - Fracture delayed union [Unknown]
  - Anxiety [Unknown]
  - Fall [Unknown]
  - Intervertebral disc degeneration [Unknown]
  - Osteoarthritis [Unknown]
  - Bursitis [Unknown]
  - Coronary artery disease [Unknown]
  - Femoral artery aneurysm [Unknown]
  - Hypertension [Unknown]
  - Hypercholesterolaemia [Unknown]
  - Asthenia [Unknown]
